FAERS Safety Report 7921152-2 (Version None)
Quarter: 2011Q4

REPORT INFORMATION
  Report Type: 
  Country: None (occurrence: None)
  Receive Date: 20111117
  Receipt Date: 20111114
  Transmission Date: 20120403
  Serious: Yes (Death)
  Sender: FDA-Public Use
  Company Number: JP-CEPHALON-2011002662

PATIENT
  Sex: Male

DRUGS (8)
  1. SIVELESTAT SODIUM [Concomitant]
     Dates: start: 20110306, end: 20110310
  2. BENDAMUSTINE HCL [Suspect]
     Indication: MANTLE CELL LYMPHOMA
     Route: 042
     Dates: start: 20110305, end: 20110306
  3. CEFTAZIDIME [Concomitant]
     Dates: start: 20110227, end: 20110330
  4. NAFAMOSTAT MESILATE [Concomitant]
     Dates: start: 20110304, end: 20110308
  5. OMEPRAZOLE SODIUM [Concomitant]
     Dates: start: 20110226, end: 20110506
  6. METHIMAZOLE [Concomitant]
  7. MICAFUNGIN SODIUM [Concomitant]
     Dates: start: 20110227, end: 20110318
  8. METHYLPREDNISOLONE SODIUM SUCCINATE [Concomitant]
     Dates: start: 20110304, end: 20110307

REACTIONS (1)
  - ENCEPHALITIS HERPES [None]
